FAERS Safety Report 8069430-3 (Version None)
Quarter: 2012Q1

REPORT INFORMATION
  Report Type: 
  Country: None (occurrence: None)
  Receive Date: 20120119
  Receipt Date: 20120105
  Transmission Date: 20120608
  Serious: Yes (Hospitalization, Other)
  Sender: FDA-Public Use
  Company Number: JPI-P-012499

PATIENT
  Age: 65 Year
  Sex: Male
  Weight: 88.905 kg

DRUGS (17)
  1. FLUOXETINE [Concomitant]
  2. CARVEDILOL [Concomitant]
  3. DEXTROAMPHETAMINE [Concomitant]
  4. PRAVASTATIN SODIUM [Concomitant]
  5. BENAZEPRIL HYDROCHLORIDE [Concomitant]
  6. BUMETANIDE [Concomitant]
  7. TRAMADOL HCL [Concomitant]
  8. CENTRUM [Concomitant]
  9. XYREM [Suspect]
     Indication: CATAPLEXY
     Dosage: 4.5 GM (2.25 GM, 2 IN 1 D), ORAL, (2 IN 1 D), ORAL, 9 GM (4.5 GM, 2 IN 1 D), ORAL
     Route: 048
     Dates: end: 20040210
  10. XYREM [Suspect]
     Indication: CATAPLEXY
     Dosage: 4.5 GM (2.25 GM, 2 IN 1 D), ORAL, (2 IN 1 D), ORAL, 9 GM (4.5 GM, 2 IN 1 D), ORAL
     Route: 048
     Dates: start: 20040211
  11. XYREM [Suspect]
     Indication: CATAPLEXY
     Dosage: 4.5 GM (2.25 GM, 2 IN 1 D), ORAL, (2 IN 1 D), ORAL, 9 GM (4.5 GM, 2 IN 1 D), ORAL
     Route: 048
     Dates: start: 20030721
  12. PRAMIPEXOLE DIHYCHLLORIDE [Concomitant]
  13. CELECOXIB [Concomitant]
  14. CLOPIDOGREL BISULFATE [Concomitant]
  15. FISH OIL [Concomitant]
  16. ACETYLSALICYLIC ACID SRT [Concomitant]
  17. PANTOPRAZOLE [Concomitant]

REACTIONS (1)
  - MYOCARDIAL INFARCTION [None]
